FAERS Safety Report 18065357 (Version 1)
Quarter: 2020Q3

REPORT INFORMATION
  Report Type: Spontaneous
  Country: US (occurrence: US)
  Receive Date: 20200723
  Receipt Date: 20200723
  Transmission Date: 20201103
  Serious: Yes (Hospitalization)
  Sender: FDA-Public Use
  Company Number: None

PATIENT
  Age: 68 Year
  Sex: Female
  Weight: 63.96 kg

DRUGS (2)
  1. VANCOMYCIN [Suspect]
     Active Substance: VANCOMYCIN
     Route: 041
     Dates: start: 20200717, end: 20200720
  2. LEVOFLOXACIN. [Suspect]
     Active Substance: LEVOFLOXACIN

REACTIONS (3)
  - Therapy cessation [None]
  - Drug hypersensitivity [None]
  - Hypersensitivity vasculitis [None]
